FAERS Safety Report 10348415 (Version 2)
Quarter: 2014Q3

REPORT INFORMATION
  Report Type: Spontaneous
  Country: CH (occurrence: CH)
  Receive Date: 20140729
  Receipt Date: 20140806
  Transmission Date: 20150326
  Serious: Yes (Life-Threatening)
  Sender: FDA-Public Use
  Company Number: CH-PFIZER INC-2014206348

PATIENT
  Age: 39 Year
  Sex: Female
  Weight: 70 kg

DRUGS (20)
  1. MIDAZOLAM [Suspect]
     Active Substance: MIDAZOLAM\MIDAZOLAM HYDROCHLORIDE
     Dosage: 5 MG, PER 1 HOUR
     Route: 041
  2. TAVEGYL [Suspect]
     Active Substance: CLEMASTINE FUMARATE
     Dosage: 2 MG, 1X/DAY
     Route: 040
     Dates: start: 20140701
  3. TOBI [Suspect]
     Active Substance: TOBRAMYCIN
     Indication: PSEUDOMONAS INFECTION
     Dosage: 300 MG, 2X/DAY
     Route: 055
     Dates: start: 20140701
  4. BACTRIM [Suspect]
     Active Substance: SULFAMETHOXAZOLE\TRIMETHOPRIM
     Dosage: 480 MG, 3X/WEEK
     Route: 048
  5. ESOMEPRAZOLE MAGNESIUM. [Suspect]
     Active Substance: ESOMEPRAZOLE MAGNESIUM
     Dosage: 40 MG, 1X/DAY
     Route: 040
  6. FUROSEMID [Suspect]
     Active Substance: FUROSEMIDE
     Dosage: 10 MG, SINGLE
     Route: 040
  7. TACROLIMUS. [Suspect]
     Active Substance: TACROLIMUS
     Dosage: 0.7 MG, 2X/DAY
     Route: 048
  8. MYCOPHENOLATE [Concomitant]
     Active Substance: MYCOPHENOLIC ACID
     Dosage: UNK
     Dates: end: 20140630
  9. INSULIN ACTRAPID HM(GE) [Suspect]
     Active Substance: INSULIN HUMAN
     Dosage: UNK
     Route: 041
  10. COLIMICIN [Suspect]
     Active Substance: COLISTIN SULFATE
     Dosage: 2 MILLIONIU, 3X/DAY
     Route: 041
  11. MORPHINE HYDROCHLORIDE [Suspect]
     Active Substance: MORPHINE HYDROCHLORIDE
     Dosage: 4 MG, PER 1 HOUR
     Route: 041
  12. TAZOBAC [Suspect]
     Active Substance: PIPERACILLIN SODIUM\TAZOBACTAM SODIUM
     Indication: PNEUMONIA
     Dosage: 4.5 G, 3X/DAY
     Route: 041
  13. DISOPRIVAN ^ASTRA ZENECA^ [Suspect]
     Active Substance: PROPOFOL
     Dosage: 150 MG, DAILY
     Route: 041
  14. HEPARIN [Suspect]
     Active Substance: HEPARIN SODIUM
     Dosage: 5000 IU, DAILY
     Route: 041
  15. AZACTAM [Suspect]
     Active Substance: AZTREONAM
     Dosage: 2200 MG, DAILY
     Route: 041
     Dates: start: 20140701
  16. FUNGIZONE [Suspect]
     Active Substance: AMPHOTERICIN B
     Dosage: 350 MG, SINGLE
     Route: 041
     Dates: start: 20140702, end: 20140702
  17. VORICONAZOLE. [Suspect]
     Active Substance: VORICONAZOLE
     Indication: PNEUMONIA
     Dosage: 200 MG, 2X/DAY
     Route: 048
  18. FUNGIZONE [Suspect]
     Active Substance: AMPHOTERICIN B
     Indication: PSEUDOMONAS INFECTION
     Dosage: 15 MG, 2X/DAY
     Route: 055
     Dates: start: 20140701, end: 20140702
  19. SINTENYL [Suspect]
     Active Substance: FENTANYL CITRATE
     Indication: PNEUMONIA
     Dosage: 400 UG, 1X/DAY (PER 24 HOURS)
     Route: 040
  20. PREDNISONE. [Suspect]
     Active Substance: PREDNISONE
     Indication: IMMUNOSUPPRESSION
     Dosage: 10 MG, 1X/DAY
     Route: 048

REACTIONS (9)
  - Drug administration error [Not Recovered/Not Resolved]
  - Renal failure acute [Not Recovered/Not Resolved]
  - Thrombocytopenia [Not Recovered/Not Resolved]
  - Haemolytic anaemia [Not Recovered/Not Resolved]
  - Accidental overdose [Not Recovered/Not Resolved]
  - Ventricular tachycardia [Recovered/Resolved]
  - Cardiac arrest [Recovered/Resolved]
  - Hyperkalaemia [Recovered/Resolved]
  - Liver injury [Not Recovered/Not Resolved]

NARRATIVE: CASE EVENT DATE: 20140702
